FAERS Safety Report 23798816 (Version 1)
Quarter: 2024Q2

REPORT INFORMATION
  Report Type: Spontaneous
  Country: ES (occurrence: None)
  Receive Date: 20240430
  Receipt Date: 20240430
  Transmission Date: 20240716
  Serious: Yes (Hospitalization)
  Sender: FDA-Public Use
  Company Number: 2024A095305

PATIENT
  Age: 71 Year
  Sex: Male

DRUGS (2)
  1. TICAGRELOR [Interacting]
     Active Substance: TICAGRELOR
     Indication: Acute coronary syndrome
     Dosage: 90 MG EVERY 12 HOURS
     Route: 048
     Dates: start: 20231215, end: 20240224
  2. ASPIRIN [Interacting]
     Active Substance: ASPIRIN
     Indication: Acute coronary syndrome
     Dosage: 100 MG /24H
     Route: 048
     Dates: start: 20231215

REACTIONS (2)
  - Anaemia [Recovered/Resolved]
  - Gastrointestinal haemorrhage [Recovered/Resolved]

NARRATIVE: CASE EVENT DATE: 20240211
